FAERS Safety Report 7484620-6 (Version None)
Quarter: 2011Q2

REPORT INFORMATION
  Report Type: 
  Country: None (occurrence: None)
  Receive Date: 20110517
  Receipt Date: 20110510
  Transmission Date: 20111010
  Serious: No
  Sender: FDA-Public Use
  Company Number: US-BIOGENIDEC-2011BI017970

PATIENT
  Age: 28 Year
  Sex: Female

DRUGS (3)
  1. AVONEX [Concomitant]
     Indication: MULTIPLE SCLEROSIS
     Route: 030
     Dates: start: 20090101
  2. TYSABRI [Suspect]
     Indication: MULTIPLE SCLEROSIS
     Route: 042
     Dates: start: 20090106, end: 20110324
  3. TYSABRI [Suspect]
     Route: 042
     Dates: start: 20070518, end: 20071005

REACTIONS (3)
  - JOINT RANGE OF MOTION DECREASED [None]
  - PERONEAL NERVE PALSY [None]
  - BALANCE DISORDER [None]
